FAERS Safety Report 4346528-4 (Version None)
Quarter: 2004Q2

REPORT INFORMATION
  Report Type: 
  Country: None (occurrence: None)
  Receive Date: 20040426
  Receipt Date: 20031114
  Transmission Date: 20050107
  Serious: No
  Sender: FDA-Public Use
  Company Number: US-BRISTOL-MYERS SQUIBB COMPANY-12436226

PATIENT
  Sex: Female

DRUGS (6)
  1. PARAPLATIN [Suspect]
     Indication: OVARIAN CANCER
     Dosage: OR LOT #3H63461, EXPIRATION DATE: 28-FEB-2005
     Route: 042
     Dates: start: 20031114, end: 20031114
  2. TAXOL [Concomitant]
     Route: 042
     Dates: start: 20031114
  3. BENADRYL [Concomitant]
     Indication: PREMEDICATION
     Route: 042
     Dates: start: 20031114
  4. KYTRIL [Concomitant]
     Indication: PREMEDICATION
     Route: 042
     Dates: start: 20031114
  5. ZANTAC [Concomitant]
     Indication: PREMEDICATION
     Route: 042
     Dates: start: 20031114
  6. DECADRON [Concomitant]
     Indication: PREMEDICATION
     Dosage: INTRAVENOUS OR ORAL
     Dates: start: 20031114

REACTIONS (1)
  - HYPERSENSITIVITY [None]
